FAERS Safety Report 4855017-X (Version None)
Quarter: 2005Q4

REPORT INFORMATION
  Report Type: 
  Country: None (occurrence: None)
  Receive Date: 20051214
  Receipt Date: 20051128
  Transmission Date: 20060501
  Serious: Yes (Hospitalization)
  Sender: FDA-Public Use
  Company Number: 2005EU002678

PATIENT
  Age: 59 Year
  Sex: Male

DRUGS (5)
  1. FK506 (TACROLIMUS) CAPSULES [Suspect]
     Indication: LIVER TRANSPLANT
     Dosage: 2 MG, UID/QD, ORAL
     Route: 048
     Dates: start: 20050920
  2. METHYLPREDNISOLONE [Suspect]
     Indication: LIVER TRANSPLANT
     Dosage: 2 MG, UID/QD,
     Dates: start: 20050920
  3. PROPRANOLOL HYDROCHLORIDE [Concomitant]
  4. OMEPRAZOLE [Concomitant]
  5. GANCICLOVIR SODIUM [Concomitant]

REACTIONS (4)
  - BACTERIA URINE IDENTIFIED [None]
  - BONE MARROW FAILURE [None]
  - NEUTROPENIA [None]
  - PROTEUS INFECTION [None]
